FAERS Safety Report 8136326-8 (Version None)
Quarter: 2012Q1

REPORT INFORMATION
  Report Type: 
  Country: None (occurrence: None)
  Receive Date: 20120214
  Receipt Date: 20120206
  Transmission Date: 20120608
  Serious: Yes (Hospitalization, Other)
  Sender: FDA-Public Use
  Company Number: US-BAYER-2011-040392

PATIENT
  Age: 16 Year
  Sex: Female
  Weight: 52.154 kg

DRUGS (11)
  1. FLUOXETINE [Concomitant]
     Indication: DEPRESSION
     Dosage: UNK
     Dates: start: 20070101
  2. DIPROLENE [Concomitant]
     Dosage: 0.05 %, BID
     Route: 061
  3. FLOVENT [Concomitant]
     Indication: ASTHMA
     Dosage: 110 MCG/24HR, QD
     Dates: start: 20040101
  4. ELIDEL [Concomitant]
     Dosage: 1 %, BID
     Route: 061
  5. LORTAB [Concomitant]
     Dosage: 500-2.5MG QHS
     Route: 048
  6. ANTIBIOTICS [Concomitant]
     Dosage: UNK
     Dates: start: 20010101
  7. YASMIN [Suspect]
     Dosage: UNK
     Dates: start: 20060901, end: 20070211
  8. ALBUTEROL [Concomitant]
     Indication: ASTHMA
     Dosage: 90 MCG/24HR, PRN
     Dates: start: 20040101
  9. YAZ [Suspect]
     Dosage: UNK
     Dates: start: 20060901, end: 20070211
  10. KEFLEX [Concomitant]
     Dosage: 500 MG, QID
     Route: 048
  11. PREDNISONE TAB [Concomitant]
     Dosage: 10 MG, UNK
     Route: 048

REACTIONS (8)
  - BILE DUCT OBSTRUCTION [None]
  - CHOLECYSTITIS CHRONIC [None]
  - DEPRESSION [None]
  - ANXIETY [None]
  - GALLBLADDER DISORDER [None]
  - ANHEDONIA [None]
  - ABDOMINAL PAIN [None]
  - PANCREATITIS [None]
